FAERS Safety Report 8496450-7 (Version None)
Quarter: 2012Q3

REPORT INFORMATION
  Report Type: 
  Country: None (occurrence: None)
  Receive Date: 20120709
  Receipt Date: 20120628
  Transmission Date: 20120928
  Serious: Yes (Death, Other)
  Sender: FDA-Public Use
  Company Number: RU-BRISTOL-MYERS SQUIBB COMPANY-16725608

PATIENT

DRUGS (1)
  1. DASATINIB [Suspect]
     Dosage: 100MG IN 26 MONTHS,DOSE REDUCED TO 70MG.

REACTIONS (3)
  - ISCHAEMIC STROKE [None]
  - PLEURAL EFFUSION [None]
  - HAEMATOTOXICITY [None]
